FAERS Safety Report 8243036-5 (Version None)
Quarter: 2012Q1

REPORT INFORMATION
  Report Type: 
  Country: None (occurrence: None)
  Receive Date: 20120329
  Receipt Date: 20120315
  Transmission Date: 20120608
  Serious: Yes (Hospitalization)
  Sender: FDA-Public Use
  Company Number: IL-RANBAXY-2012RR-52992

PATIENT
  Age: 60 Year
  Sex: Female

DRUGS (1)
  1. METFORMIN HCL [Suspect]
     Indication: DIABETES MELLITUS
     Dosage: 850 MG, NOT ON A DAILY BASIS
     Route: 065
     Dates: start: 20090101

REACTIONS (1)
  - LEUKOCYTOCLASTIC VASCULITIS [None]
